FAERS Safety Report 9110997 (Version 1)
Quarter: 2013Q1

REPORT INFORMATION
  Report Type: Spontaneous
  Country: US (occurrence: US)
  Receive Date: 20130219
  Receipt Date: 20130219
  Transmission Date: 20140127
  Serious: No
  Sender: FDA-Public Use
  Company Number: US-BRISTOL-MYERS SQUIBB COMPANY-16726671

PATIENT
  Age: 59 Year
  Sex: Female
  Weight: 71.65 kg

DRUGS (2)
  1. ABATACEPT SUBQ INJECTION 125MG/ML [Suspect]
     Indication: RHEUMATOID ARTHRITIS
     Dosage: INITIAL: IV ROUTE.?LAST INJECTION 21JUN2012?LOT #:1M47877
     Route: 058
     Dates: start: 2012
  2. FORTEO [Concomitant]

REACTIONS (1)
  - Muscular weakness [Unknown]
